FAERS Safety Report 10178946 (Version 1)
Quarter: 2014Q2

REPORT INFORMATION
  Report Type: Spontaneous
  Country: US (occurrence: None)
  Receive Date: 20140515
  Receipt Date: 20140515
  Transmission Date: 20141212
  Serious: Yes (Other)
  Sender: FDA-Public Use
  Company Number: SYM-2014-20783

PATIENT
  Age: 49 Year
  Sex: Female
  Weight: 115.67 kg

DRUGS (24)
  1. CUPRIMINE [Suspect]
     Indication: RHEUMATOID ARTHRITIS
     Route: 048
     Dates: start: 20140319, end: 20140327
  2. ATIVAN (LORAZEPAM) (1 MILLIGRAM) (LORAZEPAM) [Concomitant]
  3. VOLTAREN (DICLOFENAC) (1 PERCENT, SOLUTION) (DICLOFENAC) [Concomitant]
  4. UCERIS (BUDESONIDE) (9 MILLIGRAM) (BUDESONIDE) [Concomitant]
  5. CO Q 10 (UBIDECARENONE) (UBIDECARENONE) [Concomitant]
  6. RESTASIS (CICLOSPORIN) (EYE DROPS) (CICLOSPORIN) [Concomitant]
  7. CYMBALTA [Concomitant]
  8. VITAMIN D COLECALCIFEROL) (COLECALCIFEROL) [Concomitant]
  9. PEPCID (FAMOTIDINE) ( 40 MILLIGRAM) (FAMOTIDINE) [Concomitant]
  10. TRILIPIX (CHOLINE FENOFIBRATE) (45 MILLIGRAM) (CHOLINE FENOFIBRATE) [Concomitant]
  11. FOLIC ACID (I MILLIGRAM) (FOLIC ACID) [Concomitant]
  12. AMILORIDE (4 MILLIGRAM) (AMILORIDE) [Concomitant]
  13. NOVALOG INSULIN (INSULIN ) (INSULIN) [Concomitant]
  14. SYNTHROID (LEVOTHYROXINE SODIUM) (50 MICROGRAM) (LEVOTHYROXINE SODIUM) [Concomitant]
  15. NAMENDA (MEMANTINE HYDROCHLORIDE) (5 MILLIGRAM) (MEMANTINE HYDROCHLORIDE) [Concomitant]
  16. ASACOL (MESALAZINE) (MESALAZINE) [Concomitant]
  17. METOPROLOL (25 MILLIGRAM) (METOPROLOL) [Concomitant]
  18. CALCIUM CITRATE (10 MILLIEQUIVALENTS) (CALCIUM CITRATE) [Concomitant]
  19. PREDNISONE (PREDNISONE) [Concomitant]
  20. LYRICA (PREGABALIN) (75 MILLIGRAM) (PREGABALIN) [Concomitant]
  21. RITUXAN (RITUXIMAB) (INFUSION) (RITUXIMAB) [Concomitant]
  22. TOPAMAX (TOPIRAMATE) (50 MILLIGRAM) (TOPIRAMATE) [Concomitant]
  23. VERAPAMIL CR (VERAPAMIL) (180 MILLIGRAM) (VERAPAMIL) [Concomitant]
  24. NUCYNTA (TAPENTADOL HYDROCHLORIDE) (50 MILLIGRAM) (TAPENTADOL HYDROCHLORIDE) [Concomitant]

REACTIONS (2)
  - Swollen tongue [None]
  - Pharyngeal oedema [None]
